FAERS Safety Report 17819288 (Version 1)
Quarter: 2020Q2

REPORT INFORMATION
  Report Type: Spontaneous
  Country: IT (occurrence: IT)
  Receive Date: 20200523
  Receipt Date: 20200523
  Transmission Date: 20200714
  Serious: Yes (Hospitalization)
  Sender: FDA-Public Use
  Company Number: IT-ROCHE-2604287

PATIENT
  Age: 65 Year
  Sex: Female
  Weight: 99 kg

DRUGS (7)
  1. HERCEPTIN [Suspect]
     Active Substance: TRASTUZUMAB
     Indication: BREAST CANCER
     Route: 058
     Dates: start: 20190828, end: 20200225
  2. TRIATEC [RAMIPRIL] [Concomitant]
     Active Substance: RAMIPRIL
  3. DIBASE [Concomitant]
     Active Substance: CHOLECALCIFEROL
  4. CARDICOR [Concomitant]
     Active Substance: BISOPROLOL
  5. TOTALIP [Concomitant]
     Active Substance: ATORVASTATIN
  6. GOSURAN [Concomitant]
  7. PROLIA [Concomitant]
     Active Substance: DENOSUMAB

REACTIONS (2)
  - Autoimmune lung disease [Recovered/Resolved]
  - Acute interstitial pneumonitis [Recovered/Resolved]

NARRATIVE: CASE EVENT DATE: 20200318
